FAERS Safety Report 22603343 (Version 16)
Quarter: 2024Q3

REPORT INFORMATION
  Report Type: Report from Study
  Country: AT (occurrence: AT)
  Receive Date: 20230615
  Receipt Date: 20240822
  Transmission Date: 20241017
  Serious: Yes (Hospitalization)
  Sender: ROCHE
  Company Number: AT-ROCHE-3368603

PATIENT
  Age: 32 Year
  Sex: Female
  Weight: 62.0 kg

DRUGS (48)
  1. HERCEPTIN [Suspect]
     Active Substance: TRASTUZUMAB
     Indication: HER2 positive breast cancer
     Route: 058
     Dates: end: 20210709
  2. HERCEPTIN [Suspect]
     Active Substance: TRASTUZUMAB
     Route: 058
     Dates: start: 20220623
  3. KADCYLA [Suspect]
     Active Substance: ADO-TRASTUZUMAB EMTANSINE
     Indication: HER2 positive breast cancer
     Route: 042
     Dates: end: 20200302
  4. KADCYLA [Suspect]
     Active Substance: ADO-TRASTUZUMAB EMTANSINE
     Route: 042
     Dates: start: 20200323, end: 20201006
  5. PERJETA [Suspect]
     Active Substance: PERTUZUMAB
     Indication: HER2 positive breast cancer
     Route: 042
     Dates: start: 20170621, end: 20170621
  6. PERJETA [Suspect]
     Active Substance: PERTUZUMAB
     Route: 042
     Dates: start: 20170712, end: 20171115
  7. PERJETA [Suspect]
     Active Substance: PERTUZUMAB
     Route: 042
     Dates: start: 20180108, end: 20191127
  8. HERCEPTIN [Suspect]
     Active Substance: TRASTUZUMAB
     Indication: HER2 positive breast cancer
     Dosage: MOST RECENT DOSE PRIOR TO THE EVENT: 23/JUN/2022
     Route: 041
     Dates: start: 20170621, end: 20170621
  9. HERCEPTIN [Suspect]
     Active Substance: TRASTUZUMAB
     Route: 042
     Dates: start: 20170712, end: 20171115
  10. HERCEPTIN [Suspect]
     Active Substance: TRASTUZUMAB
     Route: 042
     Dates: start: 20180108, end: 20191127
  11. TAXOTERE [Suspect]
     Active Substance: DOCETAXEL
     Indication: HER2 positive breast cancer
     Route: 042
     Dates: start: 20170621, end: 20171115
  12. FAM-TRASTUZUMAB DERUXTECAN-NXKI [Suspect]
     Active Substance: FAM-TRASTUZUMAB DERUXTECAN-NXKI
     Indication: HER2 positive breast cancer
     Route: 042
     Dates: end: 20220603
  13. TYKERB [Suspect]
     Active Substance: LAPATINIB DITOSYLATE
     Indication: HER2 positive breast cancer
     Dosage: MOST RECENT DOSE PRIOR TO AE 28/OCT/2020
     Route: 048
     Dates: end: 20210709
  14. TYKERB [Suspect]
     Active Substance: LAPATINIB DITOSYLATE
     Dosage: MOST RECENT DOSE PRIOR TO AE 28/OCT/2020
     Route: 048
     Dates: start: 20230630
  15. TUCATINIB [Suspect]
     Active Substance: TUCATINIB
     Indication: HER2 positive breast cancer
     Route: 048
     Dates: end: 20230612
  16. AROMASIN [Suspect]
     Active Substance: EXEMESTANE
     Indication: HER2 positive breast cancer
     Dosage: MOST RECENT DOSE RECEIVED ON 30/JUN/2023
     Route: 048
  17. CAPECITABINE [Suspect]
     Active Substance: CAPECITABINE
     Indication: HER2 positive breast cancer
     Dosage: CAPECEL
     Route: 048
     Dates: end: 20230612
  18. GOSERELIN [Suspect]
     Active Substance: GOSERELIN
     Indication: HER2 positive breast cancer
     Route: 058
     Dates: start: 20180108
  19. FEMARA [Suspect]
     Active Substance: LETROZOLE
     Indication: HER2 positive breast cancer
     Dosage: MOST RECENT DOSE PRIOR TO AE 20/JAN/2020
     Route: 065
     Dates: start: 20180108
  20. XGEVA [Concomitant]
     Active Substance: DENOSUMAB
     Indication: HER2 positive breast cancer
     Route: 058
  21. GOSERELIN [Concomitant]
     Active Substance: GOSERELIN
     Dosage: ONGOING = CHECKED
     Dates: start: 20180129
  22. PIRITRAMIDE [Concomitant]
     Active Substance: PIRITRAMIDE
  23. NOVALGIN (METAMIZOLE SODIUM) [Concomitant]
     Active Substance: METAMIZOLE SODIUM
     Dosage: ONGOING = CHECKED
     Dates: start: 20180515
  24. LIPEGFILGRASTIM [Concomitant]
     Active Substance: LIPEGFILGRASTIM
  25. CALCIUM CARBONATE\CHOLECALCIFEROL [Concomitant]
     Active Substance: CALCIUM CARBONATE\CHOLECALCIFEROL
     Dosage: ONGOING = CHECKED
     Dates: start: 20171025
  26. CLOBAZAM [Concomitant]
     Active Substance: CLOBAZAM
  27. PROPOFOL [Concomitant]
     Active Substance: PROPOFOL
  28. UNASYN [Concomitant]
     Active Substance: AMPICILLIN SODIUM\SULBACTAM SODIUM
     Dates: start: 20230508, end: 20230515
  29. ROCURONIUM BROMIDE [Concomitant]
     Active Substance: ROCURONIUM BROMIDE
  30. KETOPROFEN [Concomitant]
     Active Substance: KETOPROFEN
  31. METHYLPREDNISOLONE ACEPONATE [Concomitant]
     Active Substance: METHYLPREDNISOLONE ACEPONATE
  32. APREPITANT [Concomitant]
     Active Substance: APREPITANT
     Dosage: ONGOING = CHECKED
     Dates: start: 20210812
  33. ESOMEPRAZOLE [Concomitant]
     Active Substance: ESOMEPRAZOLE
     Dosage: ONGOING = CHECKED
     Dates: start: 20170621
  34. ACETAMINOPHEN [Concomitant]
     Active Substance: ACETAMINOPHEN
  35. AUGMENTIN [Concomitant]
     Active Substance: AMOXICILLIN\CLAVULANATE POTASSIUM
  36. DEXAMETHASONE [Concomitant]
     Active Substance: DEXAMETHASONE
     Indication: Syncope
     Dosage: ONGOING = CHECKED
     Dates: start: 20201111
  37. FENTANYL [Concomitant]
     Active Substance: FENTANYL\FENTANYL CITRATE
  38. NEXIUM [Concomitant]
     Active Substance: ESOMEPRAZOLE MAGNESIUM
     Dosage: ONGOING = CHECKED
     Dates: start: 20191230
  39. DICLOFENAC [Concomitant]
     Active Substance: DICLOFENAC
     Indication: Headache
     Dates: start: 20231231, end: 20231231
  40. ESOMEPRAZOLE [Concomitant]
     Active Substance: ESOMEPRAZOLE
     Dosage: ONGOING = CHECKED
     Dates: start: 20191230
  41. DIPHENHYDRAMINE HYDROCHLORIDE [Concomitant]
     Active Substance: DIPHENHYDRAMINE HYDROCHLORIDE
  42. KETANEST [Concomitant]
  43. ZOFRAN [Concomitant]
     Active Substance: ONDANSETRON HYDROCHLORIDE
  44. LEVETIRACETAM [Concomitant]
     Active Substance: LEVETIRACETAM
     Dosage: ONGOING = CHECKED
     Dates: start: 20200102
  45. DEXAGENTA [Concomitant]
     Indication: Cataract
     Dosage: ONGOING = NOT CHECKED
     Dates: start: 20230511, end: 20230518
  46. DEXABENE [Concomitant]
  47. LOPERAMIDE HYDROCHLORIDE [Concomitant]
     Active Substance: LOPERAMIDE HYDROCHLORIDE
     Dosage: ONGOING = CHECKED
     Dates: start: 20201028
  48. LETROZOLE [Concomitant]
     Active Substance: LETROZOLE

REACTIONS (3)
  - Epilepsy [Recovered/Resolved]
  - Pneumonia [Recovered/Resolved]
  - Epilepsy [Recovered/Resolved]

NARRATIVE: CASE EVENT DATE: 20191224
